FAERS Safety Report 4781093-9 (Version None)
Quarter: 2005Q3

REPORT INFORMATION
  Report Type: 
  Country: None (occurrence: None)
  Receive Date: 20050928
  Receipt Date: 20050916
  Transmission Date: 20060218
  Serious: Yes (Hospitalization)
  Sender: FDA-Public Use
  Company Number: GB-BRISTOL-MYERS SQUIBB COMPANY-13115639

PATIENT
  Age: 56 Year
  Sex: Male
  Weight: 80 kg

DRUGS (7)
  1. CISPLATIN [Suspect]
     Indication: OROPHARYNGEAL CANCER STAGE UNSPECIFIED
     Route: 042
     Dates: start: 20050810, end: 20050810
  2. MS CONTIN [Concomitant]
     Indication: MUCOSAL INFLAMMATION
     Route: 048
     Dates: start: 20050801
  3. ACETAMINOPHEN W/ CODEINE [Concomitant]
     Indication: MUCOSAL INFLAMMATION
     Route: 048
     Dates: start: 20050727, end: 20050801
  4. ALBUTEROL SULFATE HFA [Concomitant]
     Indication: ASTHMA
     Route: 055
  5. SYMBICORT [Concomitant]
     Indication: ASTHMA
     Route: 055
  6. DEXAMETHASONE [Concomitant]
     Indication: PROPHYLAXIS OF NAUSEA AND VOMITING
  7. DOMPERIDONE [Concomitant]
     Indication: PROPHYLAXIS OF NAUSEA AND VOMITING

REACTIONS (2)
  - NEUTROPENIC SEPSIS [None]
  - PNEUMONIA [None]
